FAERS Safety Report 21936064 (Version 1)
Quarter: 2023Q1

REPORT INFORMATION
  Report Type: Spontaneous
  Country: US (occurrence: US)
  Receive Date: 20230201
  Receipt Date: 20230201
  Transmission Date: 20230417
  Serious: No
  Sender: FDA-Public Use
  Company Number: US-PFIZER INC-PV202200133159

PATIENT

DRUGS (1)
  1. GENOTROPIN [Suspect]
     Active Substance: SOMATROPIN
     Dosage: 1.5 MG (NIGHTLY FOR 6 NIGHTS A WEEK)
     Route: 058
     Dates: start: 20190227

REACTIONS (2)
  - Drug dose omission by device [Unknown]
  - Device breakage [Unknown]
